FAERS Safety Report 6909155-8 (Version None)
Quarter: 2010Q3

REPORT INFORMATION
  Report Type: 
  Country: None (occurrence: None)
  Receive Date: 20100805
  Receipt Date: 20100729
  Transmission Date: 20110219
  Serious: Yes (Other)
  Sender: FDA-Public Use
  Company Number: ZA-PFIZER INC-2010095281

PATIENT
  Age: 59 Year
  Sex: Male

DRUGS (1)
  1. ASPAVOR [Suspect]
     Dosage: UNK
     Route: 048
     Dates: start: 20091101

REACTIONS (2)
  - RESTLESSNESS [None]
  - SLEEP DISORDER [None]
